FAERS Safety Report 25578988 (Version 1)
Quarter: 2025Q3

REPORT INFORMATION
  Report Type: Spontaneous
  Country: US (occurrence: US)
  Receive Date: 20250718
  Receipt Date: 20250718
  Transmission Date: 20251021
  Serious: Yes (Hospitalization, Other)
  Sender: AMGEN
  Company Number: US-AMGEN-USASP2025135223

PATIENT
  Age: 57 Year
  Sex: Female

DRUGS (2)
  1. PREDNISONE [Suspect]
     Active Substance: PREDNISONE
     Indication: Immunosuppressant drug therapy
     Dosage: 5 MILLIGRAM, QD
     Route: 048
  2. TACROLIMUS [Concomitant]
     Active Substance: TACROLIMUS
     Dosage: 0.5 MILLIGRAM, QD
     Route: 065

REACTIONS (7)
  - Cryptococcosis [Unknown]
  - Meningitis [Unknown]
  - Pneumonia [Unknown]
  - Retinal haemorrhage [Unknown]
  - Eye infection toxoplasmal [Unknown]
  - Endophthalmitis [Unknown]
  - Cytomegalovirus test positive [Unknown]
